FAERS Safety Report 22045670 (Version 1)
Quarter: 2023Q1

REPORT INFORMATION
  Report Type: Spontaneous
  Country: US (occurrence: US)
  Receive Date: 20230228
  Receipt Date: 20230228
  Transmission Date: 20230417
  Serious: Yes (Other)
  Sender: FDA-Public Use
  Company Number: US-AMGEN-USASP2023032980

PATIENT
  Age: 75 Year
  Sex: Male

DRUGS (4)
  1. KYPROLIS [Suspect]
     Active Substance: CARFILZOMIB
     Indication: Product used for unknown indication
     Dosage: 56 MILLIGRAM/SQ. METER, QWK
     Route: 065
     Dates: start: 20230116
  2. DARATUMUMAB [Suspect]
     Active Substance: DARATUMUMAB
     Indication: Product used for unknown indication
     Dosage: UNK, QMO
     Route: 065
     Dates: start: 20230116
  3. DEXAMETHASONE [Suspect]
     Active Substance: DEXAMETHASONE
     Indication: Product used for unknown indication
     Dosage: UNK
     Route: 065
     Dates: start: 20230116
  4. LENALIDOMIDE [Suspect]
     Active Substance: LENALIDOMIDE
     Indication: Product used for unknown indication
     Dosage: UNK
     Route: 065
     Dates: start: 20230116

REACTIONS (3)
  - Cytopenia [Unknown]
  - Pancytopenia [Unknown]
  - Off label use [Unknown]

NARRATIVE: CASE EVENT DATE: 20230101
